FAERS Safety Report 11247522 (Version 2)
Quarter: 2015Q2

REPORT INFORMATION
  Report Type: Spontaneous
  Country: US (occurrence: None)
  Receive Date: 20150617
  Receipt Date: 20150617
  Transmission Date: 20150821
  Serious: No
  Sender: FDA-Public Use
  Company Number: 2014TASUS000457

PATIENT
  Age: 62 Year
  Sex: Male
  Weight: 111.1 kg

DRUGS (7)
  1. VITAMIN D (COLECALCIFEROL) [Concomitant]
  2. SYNTHROID [Concomitant]
     Active Substance: LEVOTHYROXINE SODIUM
  3. OMEGA-3 (DOCOSAHEXAENOIC ACID, EICOSAPENTAENOIC ACID) [Concomitant]
  4. PROTONIX [Concomitant]
     Active Substance: PANTOPRAZOLE SODIUM
  5. TOPROL XL [Concomitant]
     Active Substance: METOPROLOL SUCCINATE
  6. VITAMIN K2 (MENAQUINONE) [Concomitant]
  7. HETLIOZ [Suspect]
     Active Substance: TASIMELTEON
     Indication: CIRCADIAN RHYTHM SLEEP DISORDER
     Route: 048
     Dates: start: 20140612, end: 20140729

REACTIONS (2)
  - Incorrect drug administration duration [None]
  - Drug ineffective [None]

NARRATIVE: CASE EVENT DATE: 20140612
